FAERS Safety Report 7004009-3 (Version None)
Quarter: 2010Q3

REPORT INFORMATION
  Report Type: 
  Country: None (occurrence: None)
  Receive Date: 20100920
  Receipt Date: 20100127
  Transmission Date: 20110219
  Serious: No
  Sender: FDA-Public Use
  Company Number: US-WYE-H13239610

PATIENT
  Sex: Female
  Weight: 52.66 kg

DRUGS (3)
  1. PRISTIQ [Suspect]
     Indication: DEPRESSION
     Route: 048
     Dates: start: 20090101
  2. ATIVAN [Concomitant]
  3. SYNTHROID [Concomitant]

REACTIONS (2)
  - CRYING [None]
  - DRUG INEFFECTIVE [None]
